FAERS Safety Report 6234728-8 (Version None)
Quarter: 2009Q2

REPORT INFORMATION
  Report Type: 
  Country: None (occurrence: None)
  Receive Date: 20090615
  Receipt Date: 20090217
  Transmission Date: 20091009
  Serious: No
  Sender: FDA-Public Use
  Company Number: DSA_33229_2009

PATIENT
  Sex: Female

DRUGS (6)
  1. XENAZINE [Suspect]
     Indication: DYSTONIA
     Dosage: 12.5 MG 1X, 1/2 TABLET
     Dates: start: 20090214, end: 20090214
  2. ZANTAC [Concomitant]
  3. VITAMIN B6 [Concomitant]
  4. FISH OIL [Concomitant]
  5. LISINOPRIL [Concomitant]
  6. CALCIUM [Concomitant]

REACTIONS (3)
  - DRUG ADMINISTRATION ERROR [None]
  - FEELING ABNORMAL [None]
  - VOMITING [None]
